FAERS Safety Report 7807352-0 (Version None)
Quarter: 2011Q4

REPORT INFORMATION
  Report Type: 
  Country: None (occurrence: None)
  Receive Date: 20111011
  Receipt Date: 20111005
  Transmission Date: 20120403
  Serious: Yes (Hospitalization)
  Sender: FDA-Public Use
  Company Number: FR-ABBOTT-11P-056-0861497-00

PATIENT
  Sex: Female

DRUGS (14)
  1. METHOTREXATE [Suspect]
     Indication: PRODUCT USED FOR UNKNOWN INDICATION
     Dates: start: 20011101, end: 20110315
  2. NEXIUM [Concomitant]
     Indication: PRODUCT USED FOR UNKNOWN INDICATION
     Dates: start: 20110330
  3. KETOPROFEN [Concomitant]
     Indication: PRODUCT USED FOR UNKNOWN INDICATION
     Dates: start: 20110410
  4. MOTILIUM [Concomitant]
     Indication: PRODUCT USED FOR UNKNOWN INDICATION
     Dates: end: 20110315
  5. HUMIRA [Suspect]
     Indication: PRODUCT USED FOR UNKNOWN INDICATION
     Route: 058
     Dates: start: 20080601, end: 20090901
  6. TRANSIPEG [Concomitant]
     Indication: PRODUCT USED FOR UNKNOWN INDICATION
     Dates: end: 20110315
  7. HUMIRA [Suspect]
     Dates: start: 20110226, end: 20110312
  8. METHOTREXATE [Suspect]
     Dates: start: 20110815, end: 20110903
  9. COLPOTROPHINE [Concomitant]
     Indication: PRODUCT USED FOR UNKNOWN INDICATION
     Dates: end: 20110315
  10. LAMALINE [Suspect]
     Indication: PRODUCT USED FOR UNKNOWN INDICATION
     Dates: end: 20110315
  11. KETOPROFEN [Concomitant]
     Dates: end: 20110315
  12. NEXIUM [Concomitant]
     Dates: end: 20110315
  13. ACETAMINOPHEN [Concomitant]
     Indication: PRODUCT USED FOR UNKNOWN INDICATION
     Dates: start: 20110330
  14. ACETAMINOPHEN [Concomitant]
     Dates: end: 20110315

REACTIONS (6)
  - FAECES DISCOLOURED [None]
  - CHEST PAIN [None]
  - ABDOMINAL PAIN [None]
  - NAUSEA [None]
  - TRANSAMINASES INCREASED [None]
  - PAIN [None]
